FAERS Safety Report 4377909-0 (Version None)
Quarter: 2004Q2

REPORT INFORMATION
  Report Type: 
  Country: None (occurrence: None)
  Receive Date: 20040616
  Receipt Date: 20040527
  Transmission Date: 20050107
  Serious: Yes (Hospitalization)
  Sender: FDA-Public Use
  Company Number: PHEH2004US05924

PATIENT
  Age: 56 Year
  Sex: Female

DRUGS (16)
  1. ZOMETA [Suspect]
     Indication: METASTASES TO BONE
     Dosage: 4 MG ONE TIME ONLY DOSE
     Route: 042
     Dates: start: 20040525, end: 20040525
  2. FEMARA [Concomitant]
     Indication: BREAST CANCER
     Dosage: 2.5 MG, QD
     Dates: start: 20040301
  3. TRASTUZUMAB [Concomitant]
     Indication: BREAST CANCER
     Dosage: 2 MG/KG WEEKLY
     Dates: start: 20011201
  4. WARFARIN SODIUM [Concomitant]
     Indication: PROPHYLAXIS
     Dosage: UNK, QD
     Dates: start: 20020101
  5. PRILOSEC [Concomitant]
     Indication: REFLUX OESOPHAGITIS
  6. EPOGEN [Concomitant]
     Indication: ANAEMIA
     Dates: start: 20040301
  7. NEURONTIN [Concomitant]
     Indication: NEUROPATHY
     Dosage: 3:00 AM AND 9:00 PM
     Dates: start: 20030101
  8. DURAGESIC [Concomitant]
     Indication: PAIN
     Dosage: 200 MG Q 72 HOURS
     Dates: start: 20040101
  9. OXYCODONE [Concomitant]
     Indication: PAIN
     Dosage: 240 MG Q 12 HOURS
     Dates: start: 20040501
  10. ADRIAMYCIN PFS [Concomitant]
     Dates: start: 20010601, end: 20010901
  11. CYTOXAN [Concomitant]
     Dates: start: 20010601, end: 20010901
  12. TAMOXIFEN CITRATE [Concomitant]
     Dates: start: 20011201
  13. NAVELBINE [Concomitant]
     Dates: start: 20030301, end: 20030901
  14. TAXOTERE [Concomitant]
  15. XELODA [Concomitant]
     Dates: start: 20030901, end: 20040101
  16. FASLODEX [Concomitant]
     Dates: start: 20020101

REACTIONS (5)
  - GINGIVAL RECESSION [None]
  - KLEBSIELLA SEPSIS [None]
  - PAIN IN JAW [None]
  - PNEUMONIA KLEBSIELLA [None]
  - TOOTH FRACTURE [None]
